FAERS Safety Report 25586676 (Version 1)
Quarter: 2025Q3

REPORT INFORMATION
  Report Type: Spontaneous
  Country: GB (occurrence: GB)
  Receive Date: 20250721
  Receipt Date: 20250721
  Transmission Date: 20251021
  Serious: Yes (Other)
  Sender: AMGEN
  Company Number: None

PATIENT
  Age: 71 Year
  Sex: Male

DRUGS (1)
  1. XGEVA [Suspect]
     Active Substance: DENOSUMAB
     Indication: Rectal cancer
     Dosage: 120 MILLIGRAM, Q4WK (EVERY 28 DAYS)
     Route: 065

REACTIONS (4)
  - Contusion [Unknown]
  - Urinary incontinence [Unknown]
  - Fatigue [Unknown]
  - Lacrimation increased [Unknown]

NARRATIVE: CASE EVENT DATE: 20250714
